FAERS Safety Report 7036818-9 (Version None)
Quarter: 2010Q4

REPORT INFORMATION
  Report Type: 
  Country: None (occurrence: None)
  Receive Date: 20101011
  Receipt Date: 20101006
  Transmission Date: 20110411
  Serious: No
  Sender: FDA-Public Use
  Company Number: US-TEVA-250947USA

PATIENT
  Sex: Male

DRUGS (1)
  1. ALBUTEROL SULFATE AUTOHALER [Suspect]
     Indication: BRONCHIAL DISORDER
     Route: 055
     Dates: start: 20100501

REACTIONS (1)
  - MUSCULOSKELETAL CHEST PAIN [None]
